FAERS Safety Report 9133248 (Version 1)
Quarter: 2013Q1

REPORT INFORMATION
  Report Type: Report from Study
  Country: US (occurrence: US)
  Receive Date: 20130129
  Receipt Date: 20130129
  Transmission Date: 20140127
  Serious: No
  Sender: FDA-Public Use
  Company Number: US-ABBOTT-12P-163-0929101-00

PATIENT
  Age: 61 Year
  Sex: Female

DRUGS (8)
  1. HUMIRA 40 MG/0.8 ML PEN [Suspect]
     Indication: RHEUMATOID ARTHRITIS
     Dates: start: 20120329
  2. METHOTREXATE [Concomitant]
     Indication: PRODUCT USED FOR UNKNOWN INDICATION
  3. OMEPRAZOLE [Concomitant]
     Indication: BARRETT^S OESOPHAGUS
  4. FOLIC ACID [Concomitant]
     Indication: PRODUCT USED FOR UNKNOWN INDICATION
     Dosage: 1MG DAILY
  5. METOPROLOL [Concomitant]
     Indication: BLOOD PRESSURE
     Dosage: 100MG DAILY
  6. HYDROCHOROTHIAZIDE [Concomitant]
     Indication: BLOOD PRESSURE
     Dosage: 12.5MG DAILY
  7. AMLODIPINE [Concomitant]
     Indication: BLOOD PRESSURE
     Dosage: 5MG DAILY
  8. RESTASIS [Concomitant]
     Indication: ARTHRITIS
     Dosage: EYE EMULSION DROPS

REACTIONS (1)
  - Psoriasis [Not Recovered/Not Resolved]
